FAERS Safety Report 19232046 (Version 2)
Quarter: 2021Q2

REPORT INFORMATION
  Report Type: Spontaneous
  Country: US (occurrence: US)
  Receive Date: 20210507
  Receipt Date: 20210614
  Transmission Date: 20210717
  Serious: No
  Sender: FDA-Public Use
  Company Number: US-VERTEX PHARMACEUTICALS-2021-007079

PATIENT
  Age: 49 Year
  Sex: Female

DRUGS (20)
  1. TRIKAFTA [Suspect]
     Active Substance: ELEXACAFTOR\IVACAFTOR\TEZACAFTOR
     Dosage: 1 AM TABLET FOR ONE WEEK
     Route: 048
  2. TRIKAFTA [Suspect]
     Active Substance: ELEXACAFTOR\IVACAFTOR\TEZACAFTOR
     Dosage: 2 AM TABS AND 1 PM TAB TAKING IN THE AM ALTERNATING DAYS X1 WEEK
     Route: 048
  3. TACROLIMUS. [Concomitant]
     Active Substance: TACROLIMUS
  4. HYPERTONIC SALINE SOLUTION [Concomitant]
     Active Substance: SODIUM CHLORIDE
  5. ZENPEP [Concomitant]
     Active Substance: PANCRELIPASE AMYLASE\PANCRELIPASE LIPASE\PANCRELIPASE PROTEASE
  6. METOPROLOL. [Concomitant]
     Active Substance: METOPROLOL
  7. AZATHIOPRINE. [Concomitant]
     Active Substance: AZATHIOPRINE
  8. VALACYCLOVIR [Concomitant]
     Active Substance: VALACYCLOVIR HYDROCHLORIDE
  9. INSULIN DETEMIR [Concomitant]
     Active Substance: INSULIN DETEMIR
  10. OMEPRAZOLE. [Concomitant]
     Active Substance: OMEPRAZOLE
  11. MONTELUKAST [Concomitant]
     Active Substance: MONTELUKAST SODIUM
  12. SERTRALINE [Concomitant]
     Active Substance: SERTRALINE HYDROCHLORIDE
  13. PREDNISONE. [Concomitant]
     Active Substance: PREDNISONE
  14. ADVAIR HFA [Concomitant]
     Active Substance: FLUTICASONE PROPIONATE\SALMETEROL XINAFOATE
  15. ARIPIPRAZOLE. [Concomitant]
     Active Substance: ARIPIPRAZOLE
  16. MOMETASONE [Concomitant]
     Active Substance: MOMETASONE
     Route: 045
  17. LOSARTAN. [Concomitant]
     Active Substance: LOSARTAN
  18. TRIKAFTA [Suspect]
     Active Substance: ELEXACAFTOR\IVACAFTOR\TEZACAFTOR
     Indication: CYSTIC FIBROSIS
     Dosage: 2 TABS (100 MG ELEXACAFTOR/ 50 MG TEZACAFTOR/ 75 MG IVACAFTOR) AM AND 1 TAB (150MG IVACAFTOR) PM
     Route: 048
     Dates: start: 202007
  19. TRIKAFTA [Suspect]
     Active Substance: ELEXACAFTOR\IVACAFTOR\TEZACAFTOR
     Dosage: 2 AM TABS DAILY WITH NO PM DOSES
     Route: 048
  20. LORAZEPAM. [Concomitant]
     Active Substance: LORAZEPAM

REACTIONS (6)
  - Menopause [Unknown]
  - Hot flush [Unknown]
  - Cervical discharge [Unknown]
  - Feeling abnormal [Unknown]
  - Amenorrhoea [Unknown]
  - Blood follicle stimulating hormone increased [Unknown]

NARRATIVE: CASE EVENT DATE: 202007
